FAERS Safety Report 8593982-8 (Version None)
Quarter: 2012Q3

REPORT INFORMATION
  Report Type: 
  Country: None (occurrence: None)
  Receive Date: 20120814
  Receipt Date: 20120705
  Transmission Date: 20120928
  Serious: No
  Sender: FDA-Public Use
  Company Number: US-ASTRAZENECA-2012SE46189

PATIENT
  Sex: Male

DRUGS (2)
  1. PERCOCET [Concomitant]
     Indication: PAIN
  2. NEXIUM [Suspect]
     Route: 048

REACTIONS (5)
  - BACK PAIN [None]
  - INTERVERTEBRAL DISC PROTRUSION [None]
  - PARAESTHESIA [None]
  - HYPOAESTHESIA [None]
  - BACK INJURY [None]
